FAERS Safety Report 10924688 (Version 2)
Quarter: 2015Q2

REPORT INFORMATION
  Report Type: Spontaneous
  Country: US (occurrence: US)
  Receive Date: 20150318
  Receipt Date: 20150524
  Transmission Date: 20150821
  Serious: No
  Sender: FDA-Public Use
  Company Number: US-JNJFOC-20121001427

PATIENT
  Age: 17 Year
  Sex: Female
  Weight: 35.38 kg

DRUGS (5)
  1. NIZORAL A-D [Suspect]
     Active Substance: KETOCONAZOLE
     Indication: FUNGAL INFECTION
     Dosage: 1 %, DOSE: QUARTER SIZE, INTERVAL: 3 TO 4 DAYS IN A ROW
     Route: 061
  2. ANTI-SEIZURE MEDICATION [Concomitant]
     Indication: LENNOX-GASTAUT SYNDROME
     Dosage: INITIATED YEARS AGO
     Route: 065
  3. NIZORAL A-D [Suspect]
     Active Substance: KETOCONAZOLE
     Indication: SKIN EXFOLIATION
     Dosage: 1 %, DOSE: QUARTER SIZE, INTERVAL: 3 TO 4 DAYS IN A ROW
     Route: 061
  4. GLYCOLAX [Concomitant]
     Active Substance: POLYETHYLENE GLYCOL 3350
     Indication: CONSTIPATION
     Dosage: INITIATED YEARS AGO
     Route: 065
  5. BENZOYL PEROXIDE W/CLINDAMYCIN [Concomitant]
     Indication: ACNE
     Dosage: INITIATED YEARS AGO
     Route: 065

REACTIONS (3)
  - Skin exfoliation [Recovering/Resolving]
  - Product use issue [Recovered/Resolved]
  - Inappropriate schedule of drug administration [Recovered/Resolved]
